FAERS Safety Report 7083672-5 (Version None)
Quarter: 2010Q4

REPORT INFORMATION
  Report Type: 
  Country: None (occurrence: None)
  Receive Date: 20101103
  Receipt Date: 20101103
  Transmission Date: 20110411
  Serious: Yes (Life-Threatening, Hospitalization)
  Sender: FDA-Public Use
  Company Number: None

PATIENT
  Age: 39 Year
  Sex: Female
  Weight: 64.8644 kg

DRUGS (1)
  1. CIPRO [Suspect]
     Dosage: 500MG 2X PO
     Route: 048
     Dates: start: 20100729, end: 20100804

REACTIONS (10)
  - AMNESIA [None]
  - DIARRHOEA [None]
  - DRUG TOXICITY [None]
  - MUSCLE ATROPHY [None]
  - NEUROPATHY PERIPHERAL [None]
  - PHOTOPHOBIA [None]
  - ROTATOR CUFF SYNDROME [None]
  - TENDON DISORDER [None]
  - URTICARIA [None]
  - VISION BLURRED [None]
